FAERS Safety Report 20653808 (Version 1)
Quarter: 2022Q1

REPORT INFORMATION
  Report Type: Spontaneous
  Country: US (occurrence: US)
  Receive Date: 20220330
  Receipt Date: 20220330
  Transmission Date: 20220423
  Serious: No
  Sender: FDA-Public Use
  Company Number: US-SUNOVION-2022SUN000956

PATIENT
  Sex: Female

DRUGS (1)
  1. LATUDA [Suspect]
     Active Substance: LURASIDONE HYDROCHLORIDE
     Indication: Movement disorder
     Dosage: 20 MG, QD
     Route: 048

REACTIONS (3)
  - Attention deficit hyperactivity disorder [Unknown]
  - Oppositional defiant disorder [Unknown]
  - Off label use [Unknown]
